FAERS Safety Report 8435034-3 (Version None)
Quarter: 2012Q2

REPORT INFORMATION
  Report Type: 
  Country: None (occurrence: None)
  Receive Date: 20120614
  Receipt Date: 20120606
  Transmission Date: 20120825
  Serious: Yes (Hospitalization)
  Sender: FDA-Public Use
  Company Number: JP-ABBOTT-12P-087-0928571-00

PATIENT
  Age: 74 Year
  Sex: Male

DRUGS (5)
  1. FLUTAMIDE [Suspect]
     Indication: PROSTATE CANCER STAGE IV
     Dates: start: 20111109
  2. OXYCONTIN [Concomitant]
     Indication: CANCER PAIN
     Route: 048
     Dates: start: 20101203
  3. LEUPROLIDE ACETATE [Suspect]
     Indication: PROSTATE CANCER
     Route: 058
     Dates: start: 20100108, end: 20120328
  4. CASODEX [Suspect]
     Indication: PROSTATE CANCER STAGE IV
     Route: 048
     Dates: start: 20100924, end: 20111108
  5. ZOMETA [Concomitant]
     Indication: METASTASES TO BONE
     Route: 042

REACTIONS (1)
  - GLUCOSE TOLERANCE IMPAIRED [None]
